FAERS Safety Report 15393510 (Version 1)
Quarter: 2018Q3

REPORT INFORMATION
  Report Type: Spontaneous
  Country: AU (occurrence: AU)
  Receive Date: 20180917
  Receipt Date: 20180917
  Transmission Date: 20181010
  Serious: Yes (Hospitalization)
  Sender: FDA-Public Use
  Company Number: AU-PFIZER INC-2018370952

PATIENT

DRUGS (2)
  1. PHENYTOIN SODIUM. [Suspect]
     Active Substance: PHENYTOIN SODIUM
     Indication: SEIZURE
     Dosage: UNK
  2. LACTOSE [Suspect]
     Active Substance: LACTOSE
     Dosage: UNK

REACTIONS (5)
  - Toxicity to various agents [Recovered/Resolved]
  - Reaction to excipient [Recovered/Resolved]
  - Extrapyramidal disorder [Recovered/Resolved]
  - Ataxia [Recovered/Resolved]
  - Dystonia [Recovered/Resolved]
